FAERS Safety Report 12924567 (Version 1)
Quarter: 2016Q4

REPORT INFORMATION
  Report Type: Spontaneous
  Country: US (occurrence: US)
  Receive Date: 20161109
  Receipt Date: 20161109
  Transmission Date: 20170207
  Serious: Yes (Other)
  Sender: FDA-Public Use
  Company Number: US-CREALTA PHARMACEUTICALS-2016S1000037

PATIENT
  Age: 67 Year
  Sex: Male
  Weight: 95.16 kg

DRUGS (3)
  1. KRYSTEXXA [Suspect]
     Active Substance: PEGLOTICASE
     Indication: GOUT
     Route: 042
     Dates: start: 20160613, end: 20160613
  2. SOLU-CORTEF [Concomitant]
     Active Substance: HYDROCORTISONE SODIUM SUCCINATE
     Indication: ALLERGY PROPHYLAXIS
     Dates: start: 20160627, end: 20160627
  3. KRYSTEXXA [Suspect]
     Active Substance: PEGLOTICASE
     Route: 042
     Dates: start: 20160627, end: 20160627

REACTIONS (1)
  - Infusion related reaction [Recovered/Resolved]

NARRATIVE: CASE EVENT DATE: 20160627
